FAERS Safety Report 19694888 (Version 1)
Quarter: 2021Q3

REPORT INFORMATION
  Report Type: Spontaneous
  Country: DE (occurrence: DE)
  Receive Date: 20210813
  Receipt Date: 20210813
  Transmission Date: 20211014
  Serious: Yes (Hospitalization, Other)
  Sender: FDA-Public Use
  Company Number: DE-TEVA-2021-DE-1940778

PATIENT
  Age: 63 Year
  Sex: Male
  Weight: 94.5 kg

DRUGS (14)
  1. ZOPICLON [Concomitant]
     Active Substance: ZOPICLONE
     Dosage: 7.5 MG, AS NEEDED
     Route: 048
  2. PREGABALIN. [Concomitant]
     Active Substance: PREGABALIN
     Dosage: 150 MILLIGRAM DAILY;  0?0?1?0
     Route: 048
  3. SITAGLIPTIN [Concomitant]
     Active Substance: SITAGLIPTIN
     Dosage: 25 MILLIGRAM DAILY; 1?0?0?0,
     Route: 048
  4. ONDANSETRON [Concomitant]
     Active Substance: ONDANSETRON
     Dosage: 4 MG, AS NEEDED,
     Route: 048
  5. DEXAMETHASON [Suspect]
     Active Substance: DEXAMETHASONE
     Dosage: 8 MG, PAUSED SINCE 25112020
     Route: 048
  6. METAMIZOL [Concomitant]
     Active Substance: METAMIZOLE SODIUM
     Dosage: AMPOULES, 1000 MG, NEEDS,
     Route: 042
  7. CALCITRIOL. [Concomitant]
     Active Substance: CALCITRIOL
     Dosage: 2 DOSAGE FORMS DAILY; 0.25 MCG, 2?0?0?0,
     Route: 048
  8. CARBOPLATIN. [Suspect]
     Active Substance: CARBOPLATIN
     Dosage: ACCORDING TO THE SCHEME
     Route: 065
  9. DALTEPARIN [Concomitant]
     Active Substance: DALTEPARIN
     Dosage: 1 DOSAGE FORMS DAILY; 5000 IU, 0?0?1?0, PRE?FILLED SYRINGES
     Route: 058
  10. PARACETAMOL [Concomitant]
     Active Substance: ACETAMINOPHEN
     Dosage: 1000 MG, AS NEEDED,
     Route: 042
  11. GEMCITABINE. [Suspect]
     Active Substance: GEMCITABINE
     Dosage: ACCORDING TO THE SCHEME
     Route: 065
  12. TORASEMID [Concomitant]
     Active Substance: TORSEMIDE
     Dosage: 2 DOSAGE FORMS DAILY; 10 MG, 2?0?0?0
     Route: 048
  13. PANTOPRAZOL [Concomitant]
     Active Substance: PANTOPRAZOLE SODIUM
     Dosage: 40 MILLIGRAM DAILY; 1?0?0?0,
     Route: 048
  14. ACETYLSALICYLSAURE [Concomitant]
     Active Substance: ASPIRIN
     Dosage: 100 MILLIGRAM DAILY;  1?0?0?0
     Route: 048

REACTIONS (3)
  - Urosepsis [Unknown]
  - Pyrexia [Unknown]
  - Chills [Unknown]
